FAERS Safety Report 9814383 (Version 1)
Quarter: 2014Q1

REPORT INFORMATION
  Report Type: Spontaneous
  Country: US (occurrence: US)
  Receive Date: 20140113
  Receipt Date: 20140113
  Transmission Date: 20141002
  Serious: No
  Sender: FDA-Public Use
  Company Number: US-TEVA-455621USA

PATIENT
  Age: 25 Year
  Sex: Female
  Weight: 61.74 kg

DRUGS (1)
  1. PARAGARD 380A [Suspect]
     Indication: CONTRACEPTION
     Route: 015
     Dates: start: 20140107

REACTIONS (4)
  - Metrorrhagia [Not Recovered/Not Resolved]
  - Abdominal pain [Not Recovered/Not Resolved]
  - Back pain [Not Recovered/Not Resolved]
  - Headache [Not Recovered/Not Resolved]
